FAERS Safety Report 6811865-8 (Version None)
Quarter: 2010Q2

REPORT INFORMATION
  Report Type: 
  Country: None (occurrence: None)
  Receive Date: 20100628
  Receipt Date: 20100618
  Transmission Date: 20101027
  Serious: Yes (Other)
  Sender: FDA-Public Use
  Company Number: 2010SP029883

PATIENT
  Age: 60 Year
  Sex: Male
  Weight: 59 kg

DRUGS (5)
  1. PEG-INTRON [Suspect]
     Indication: HEPATITIS C
     Dosage: 80 MCG, QW;SC
     Route: 058
     Dates: start: 20091106, end: 20100528
  2. REBETOL [Suspect]
     Indication: HEPATITIS C
     Dosage: 800 MG,QD,PO;400 MG,QD,PO; 200 MG,QD,PO; 400 MG,QD,PO
     Route: 048
     Dates: start: 20091106, end: 20100114
  3. REBETOL [Suspect]
     Indication: HEPATITIS C
     Dosage: 800 MG,QD,PO;400 MG,QD,PO; 200 MG,QD,PO; 400 MG,QD,PO
     Route: 048
     Dates: start: 20100114, end: 20100318
  4. REBETOL [Suspect]
     Indication: HEPATITIS C
     Dosage: 800 MG,QD,PO;400 MG,QD,PO; 200 MG,QD,PO; 400 MG,QD,PO
     Route: 048
     Dates: start: 20100319, end: 20100415
  5. REBETOL [Suspect]
     Indication: HEPATITIS C
     Dosage: 800 MG,QD,PO;400 MG,QD,PO; 200 MG,QD,PO; 400 MG,QD,PO
     Route: 048
     Dates: start: 20100416

REACTIONS (3)
  - MALAISE [None]
  - MESANGIOPROLIFERATIVE GLOMERULONEPHRITIS [None]
  - NEPHROTIC SYNDROME [None]
